FAERS Safety Report 4324761-5 (Version None)
Quarter: 2004Q1

REPORT INFORMATION
  Report Type: 
  Country: None (occurrence: None)
  Receive Date: 20040322
  Receipt Date: 20040304
  Transmission Date: 20041129
  Serious: No
  Sender: FDA-Public Use
  Company Number: 2004SE01264

PATIENT
  Age: 59 Year
  Sex: Male
  Weight: 65 kg

DRUGS (3)
  1. BLOPRESS [Suspect]
     Indication: HYPERTENSION
     Dosage: 4 MG PO
     Route: 048
     Dates: start: 20021008
  2. SULFONAMIDES [Concomitant]
  3. AMLODIPINE BESILATE  UREA DERIVATIVES [Concomitant]

REACTIONS (1)
  - BLOOD PRESSURE INCREASED [None]
